FAERS Safety Report 18019337 (Version 1)
Quarter: 2020Q3

REPORT INFORMATION
  Report Type: Spontaneous
  Country: US (occurrence: US)
  Receive Date: 20200713
  Receipt Date: 20200713
  Transmission Date: 20201103
  Serious: Yes (Other)
  Sender: FDA-Public Use
  Company Number: None

PATIENT
  Age: 70 Year
  Sex: Female
  Weight: 79.38 kg

DRUGS (1)
  1. HAND SANITIZER?GEL [Suspect]
     Active Substance: ALCOHOL
     Dates: start: 20200707

REACTIONS (5)
  - Paraesthesia [None]
  - Eczema [None]
  - Hypoaesthesia oral [None]
  - Product quality issue [None]
  - Recalled product administered [None]

NARRATIVE: CASE EVENT DATE: 20200707
